FAERS Safety Report 18023224 (Version 1)
Quarter: 2020Q3

REPORT INFORMATION
  Report Type: Spontaneous
  Country: CN (occurrence: CN)
  Receive Date: 20200714
  Receipt Date: 20200714
  Transmission Date: 20201103
  Serious: Yes (Other)
  Sender: FDA-Public Use
  Company Number: CN-PFIZER INC-2020266542

PATIENT
  Age: 72 Year
  Sex: Female
  Weight: 73.2 kg

DRUGS (4)
  1. CELEBREX [Suspect]
     Active Substance: CELECOXIB
     Indication: INFLAMMATION
  2. CELEBREX [Suspect]
     Active Substance: CELECOXIB
     Indication: ANALGESIC THERAPY
  3. HE SHUANG [Suspect]
     Active Substance: POLYETHYLENE GLYCOL, UNSPECIFIED
     Indication: NEOPLASM
     Dosage: 68.56 G, 1X/DAY
     Route: 048
     Dates: start: 20200621, end: 20200621
  4. CELEBREX [Suspect]
     Active Substance: CELECOXIB
     Indication: NEOPLASM
     Dosage: 0.2 G, 1X/DAY
     Route: 048
     Dates: start: 20200619, end: 20200622

REACTIONS (5)
  - Vomiting [Recovered/Resolved]
  - Seizure [Recovered/Resolved]
  - Depressed level of consciousness [Recovered/Resolved]
  - Nausea [Recovered/Resolved]
  - Electrolyte imbalance [Recovered/Resolved]

NARRATIVE: CASE EVENT DATE: 20200622
